FAERS Safety Report 25000329 (Version 1)
Quarter: 2025Q1

REPORT INFORMATION
  Report Type: Spontaneous
  Country: US (occurrence: US)
  Receive Date: 20250222
  Receipt Date: 20250222
  Transmission Date: 20250409
  Serious: No
  Sender: SANOFI AVENTIS
  Company Number: US-SA-2025SA053679

PATIENT
  Sex: Female
  Weight: 47 kg

DRUGS (2)
  1. DUPIXENT [Suspect]
     Active Substance: DUPILUMAB
     Indication: Illness
     Dosage: 300 MG, QOW
     Route: 058
     Dates: end: 202501
  2. NEMOLIZUMAB [Concomitant]
     Active Substance: NEMOLIZUMAB

REACTIONS (5)
  - Psoriasis [Recovering/Resolving]
  - Eyelid margin crusting [Recovering/Resolving]
  - Eye pain [Recovering/Resolving]
  - Vision blurred [Recovering/Resolving]
  - Arthralgia [Recovering/Resolving]
